FAERS Safety Report 5764576-4 (Version None)
Quarter: 2008Q2

REPORT INFORMATION
  Report Type: 
  Country: None (occurrence: None)
  Receive Date: 20080604
  Receipt Date: 20080522
  Transmission Date: 20081010
  Serious: Yes (Other)
  Sender: FDA-Public Use
  Company Number: DSA_31042_2007

PATIENT
  Sex: Female
  Weight: 69.8539 kg

DRUGS (4)
  1. CARDIZEM [Suspect]
     Indication: HYPERTENSION
     Dosage: (DF ORAL) (120 MG TID TAKES 90 MG AND 30 MG TABLETS FOR DOSE OF 120 MG TID ORAL)
     Route: 048
     Dates: start: 19840101, end: 20070920
  2. CARDIZEM [Suspect]
     Indication: PRINZMETAL ANGINA
     Dosage: (DF ORAL) (120 MG TID TAKES 90 MG AND 30 MG TABLETS FOR DOSE OF 120 MG TID ORAL)
     Route: 048
     Dates: start: 19840101, end: 20070920
  3. CARDIZEM [Suspect]
     Indication: HYPERTENSION
     Dosage: (DF ORAL) (120 MG TID TAKES 90 MG AND 30 MG TABLETS FOR DOSE OF 120 MG TID ORAL)
     Route: 048
     Dates: start: 20070920
  4. CARDIZEM [Suspect]
     Indication: PRINZMETAL ANGINA
     Dosage: (DF ORAL) (120 MG TID TAKES 90 MG AND 30 MG TABLETS FOR DOSE OF 120 MG TID ORAL)
     Route: 048
     Dates: start: 20070920

REACTIONS (9)
  - AORTIC VALVE INCOMPETENCE [None]
  - DRUG INEFFECTIVE [None]
  - FEELING JITTERY [None]
  - GINGIVAL SWELLING [None]
  - MITRAL VALVE INCOMPETENCE [None]
  - MYOCARDIAL INFARCTION [None]
  - PRINZMETAL ANGINA [None]
  - STRESS [None]
  - TREATMENT NONCOMPLIANCE [None]
